FAERS Safety Report 15963406 (Version 1)
Quarter: 2019Q1

REPORT INFORMATION
  Report Type: Spontaneous
  Country: US (occurrence: US)
  Receive Date: 20190214
  Receipt Date: 20190214
  Transmission Date: 20190417
  Serious: Yes (Other)
  Sender: FDA-Public Use
  Company Number: US-ALLERGAN-1809932US

PATIENT
  Age: 47 Year
  Sex: Female

DRUGS (2)
  1. GOLIMUMAB [Concomitant]
     Active Substance: GOLIMUMAB
     Dosage: UNK
  2. OZURDEX [Suspect]
     Active Substance: DEXAMETHASONE
     Indication: CHORIORETINITIS
     Dosage: 0.7 MG, SINGLE
     Route: 031
     Dates: start: 20180214, end: 20180214

REACTIONS (2)
  - Endophthalmitis [Recovering/Resolving]
  - Contraindicated product administered [Unknown]

NARRATIVE: CASE EVENT DATE: 20180221
